FAERS Safety Report 13393540 (Version 1)
Quarter: 2017Q1

REPORT INFORMATION
  Report Type: Spontaneous
  Country: US (occurrence: US)
  Receive Date: 20170331
  Receipt Date: 20170331
  Transmission Date: 20170429
  Serious: Yes (Other)
  Sender: FDA-Public Use
  Company Number: US-CELGENEUS-USA-20170310470

PATIENT
  Age: 83 Year
  Sex: Female
  Weight: 74.46 kg

DRUGS (10)
  1. REVLIMID [Suspect]
     Active Substance: LENALIDOMIDE
     Indication: PLASMA CELL MYELOMA
     Dosage: 25 MILLIGRAM
     Route: 048
     Dates: start: 200610
  2. REVLIMID [Suspect]
     Active Substance: LENALIDOMIDE
     Dosage: 5 MILLIGRAM
     Route: 048
     Dates: start: 20161112
  3. LASIX [Concomitant]
     Active Substance: FUROSEMIDE
     Indication: OEDEMA
     Route: 065
  4. NORCO [Concomitant]
     Active Substance: ACETAMINOPHEN\HYDROCODONE BITARTRATE
     Indication: PAIN
     Dosage: 5-325MG
     Route: 065
  5. SYNTHROID [Concomitant]
     Active Substance: LEVOTHYROXINE SODIUM
     Indication: HYPOTHYROIDISM
     Dosage: 125 MICROGRAM
     Route: 065
  6. MORPHINE SULFATE ER [Concomitant]
     Active Substance: MORPHINE SULFATE
     Indication: PAIN
     Dosage: 15 MILLIGRAM
     Route: 065
  7. IBUPROFEN. [Concomitant]
     Active Substance: IBUPROFEN
     Indication: PAIN
     Dosage: 200 MILLIGRAM
     Route: 065
  8. POTASSIUM CH ER [Concomitant]
     Indication: VITAMIN SUPPLEMENTATION
     Dosage: 10 MILLIEQUIVALENTS
     Route: 065
  9. GLYCERIN. [Concomitant]
     Active Substance: GLYCERIN
     Indication: PRODUCT USED FOR UNKNOWN INDICATION
     Route: 065
  10. REVLIMID [Suspect]
     Active Substance: LENALIDOMIDE
     Dosage: 10 MILLIGRAM
     Route: 048
     Dates: start: 200702

REACTIONS (1)
  - Full blood count decreased [Unknown]

NARRATIVE: CASE EVENT DATE: 20170329
